FAERS Safety Report 7829679-9 (Version None)
Quarter: 2011Q4

REPORT INFORMATION
  Report Type: 
  Country: None (occurrence: None)
  Receive Date: 20111021
  Receipt Date: 20111017
  Transmission Date: 20120403
  Serious: Yes (Other)
  Sender: FDA-Public Use
  Company Number: US-PAR PHARMACEUTICAL, INC-2011SCPR003006

PATIENT

DRUGS (1)
  1. CALCITONIN SALMON [Suspect]
     Indication: OSTEOPOROSIS
     Dosage: UNK, UNKNOWN
     Route: 045
     Dates: start: 20110101, end: 20110701

REACTIONS (3)
  - NASAL DISCOMFORT [None]
  - ACCIDENTAL EXPOSURE [None]
  - EYE IRRITATION [None]
